FAERS Safety Report 25052568 (Version 1)
Quarter: 2025Q1

REPORT INFORMATION
  Report Type: Other
  Country: US (occurrence: US)
  Receive Date: 20250307
  Receipt Date: 20250307
  Transmission Date: 20250409
  Serious: Yes (Hospitalization)
  Sender: ESTEVE
  Company Number: US-Esteve Pharmaceuticals SA-2172448

PATIENT
  Age: 63 Year
  Sex: Female

DRUGS (27)
  1. LYSODREN [Suspect]
     Active Substance: MITOTANE
     Indication: Adrenal gland cancer
     Dates: start: 20231223
  2. ALBUTEROL AER HFA [Concomitant]
  3. WARFARIN TAB 5MG [Concomitant]
  4. VITAMIN B-12 TAB 1000MCG [Concomitant]
  5. TYLENOL TAB 500MG [Concomitant]
  6. THIAMINE HCL TAB 100MG [Concomitant]
  7. ONDANSETRON [Concomitant]
     Active Substance: ONDANSETRON
  8. OMEPRAZOLE TAB 20MG [Concomitant]
  9. NYSTATIN [Concomitant]
     Active Substance: NYSTATIN
  10. METOCLOPRAM TAB 10MG; [Concomitant]
  11. MELATONIN TAB 1MG [Concomitant]
  12. LOVENOX INJ 30/0.3ML [Concomitant]
  13. LOPERAMIDE CAP 2MG [Concomitant]
  14. LIDO/PRILOCN CRE 2.5-2.5% [Concomitant]
  15. LEVOTHYROXIN TAB 112MCG [Concomitant]
  16. HYDROCORT TAB 10MG [Concomitant]
  17. FOLIC ACID TAB 1000MCG [Concomitant]
  18. FOLIC ACID POW [Concomitant]
  19. ETOPOSIDE INJ 100/5ML [Concomitant]
  20. DULOXETINE CAP 30MG [Concomitant]
  21. DOCUSATE SOD CAP 100MG [Concomitant]
  22. DIVALPROEX SODIUM [Concomitant]
     Active Substance: DIVALPROEX SODIUM
  23. CISPLATIN INJ 50/50ML [Concomitant]
  24. CINVANTI INJ 130/18ML [Concomitant]
  25. BUTALBITAL POW [Concomitant]
  26. BUT/APAP/CAF CAP [Concomitant]
  27. AMLODIPINE [Concomitant]
     Active Substance: AMLODIPINE BESYLATE

REACTIONS (4)
  - Hallucination [Unknown]
  - Fatigue [Unknown]
  - Anxiety [Unknown]
  - Vision blurred [Unknown]

NARRATIVE: CASE EVENT DATE: 20240224
